FAERS Safety Report 9484820 (Version 2)
Quarter: 2013Q3

REPORT INFORMATION
  Report Type: Spontaneous
  Country: JP (occurrence: JP)
  Receive Date: 20130828
  Receipt Date: 20130903
  Transmission Date: 20140515
  Serious: Yes (Hospitalization)
  Sender: FDA-Public Use
  Company Number: JP-GLAXOSMITHKLINE-B0915870A

PATIENT
  Age: 86 Year
  Sex: Male

DRUGS (5)
  1. SERETIDE (50MCG/250MCG) [Suspect]
     Indication: CHRONIC OBSTRUCTIVE PULMONARY DISEASE
     Dosage: 250MCG TWICE PER DAY
     Route: 055
     Dates: start: 201102
  2. THEODUR [Concomitant]
     Route: 048
  3. GAMOFA [Concomitant]
     Route: 065
  4. SENNOSIDE [Concomitant]
     Route: 048
  5. FRANDOL [Concomitant]
     Route: 065

REACTIONS (3)
  - Pneumonia [Recovered/Resolved]
  - Product quality issue [Unknown]
  - Product contamination microbial [Unknown]
